FAERS Safety Report 25440039 (Version 1)
Quarter: 2025Q2

REPORT INFORMATION
  Report Type: Spontaneous
  Country: CN (occurrence: CN)
  Receive Date: 20250616
  Receipt Date: 20250616
  Transmission Date: 20250717
  Serious: Yes (Other)
  Sender: PFIZER
  Company Number: CN-PFIZER INC-PV202500071137

PATIENT
  Sex: Male

DRUGS (1)
  1. TALZENNA [Suspect]
     Active Substance: TALAZOPARIB TOSYLATE
     Dosage: 0.25 MG, 1X/DAY
     Route: 048
     Dates: start: 20250525

REACTIONS (4)
  - Red blood cell count decreased [Unknown]
  - Haemoglobin decreased [Unknown]
  - Platelet count decreased [Unknown]
  - Pyrexia [Unknown]
